FAERS Safety Report 5752271-7 (Version None)
Quarter: 2008Q2

REPORT INFORMATION
  Report Type: 
  Country: None (occurrence: None)
  Receive Date: 20080529
  Receipt Date: 20080526
  Transmission Date: 20081010
  Serious: Yes (Hospitalization)
  Sender: FDA-Public Use
  Company Number: BR-BAYER-200814186LA

PATIENT
  Age: 30 Year
  Sex: Female

DRUGS (5)
  1. BETAFERON [Suspect]
     Indication: MULTIPLE SCLEROSIS
     Dosage: UNIT DOSE: 0.75 ML
     Route: 058
     Dates: start: 20080206
  2. BETAFERON [Suspect]
     Route: 058
     Dates: start: 20080101, end: 20080505
  3. BETAFERON [Suspect]
     Route: 058
     Dates: start: 20080506
  4. SIBUTRAMINE HCL [Concomitant]
     Indication: WEIGHT DECREASED
     Dosage: TOTAL DAILY DOSE: 12 MG  UNIT DOSE: 12 MG
     Route: 048
     Dates: start: 20070801
  5. DIANE 35 [Concomitant]
     Indication: POLYCYSTIC OVARIES
     Dosage: TOTAL DAILY DOSE: 1 DF
     Route: 048
     Dates: start: 19950101

REACTIONS (6)
  - ALANINE AMINOTRANSFERASE INCREASED [None]
  - DIPLOPIA [None]
  - HYPERTENSION [None]
  - HYPOAESTHESIA [None]
  - MULTIPLE SCLEROSIS RELAPSE [None]
  - SENSORY DISTURBANCE [None]
